FAERS Safety Report 15139016 (Version 1)
Quarter: 2018Q3

REPORT INFORMATION
  Report Type: Spontaneous
  Country: CA (occurrence: CA)
  Receive Date: 20180713
  Receipt Date: 20180713
  Transmission Date: 20181010
  Serious: Yes (Hospitalization)
  Sender: FDA-Public Use
  Company Number: CA-EMD SERONO-9034755

PATIENT
  Sex: Female

DRUGS (1)
  1. SAIZEN [Suspect]
     Active Substance: SOMATROPIN
     Indication: PRODUCT USED FOR UNKNOWN INDICATION
     Route: 058

REACTIONS (5)
  - Vomiting [Recovering/Resolving]
  - Influenza [Recovering/Resolving]
  - Gastrointestinal infection [Recovering/Resolving]
  - Depressed level of consciousness [Recovering/Resolving]
  - Diarrhoea [Recovering/Resolving]
